FAERS Safety Report 6353282-3 (Version None)
Quarter: 2009Q3

REPORT INFORMATION
  Report Type: 
  Country: None (occurrence: None)
  Receive Date: 20090912
  Receipt Date: 20090622
  Transmission Date: 20100115
  Serious: No
  Sender: FDA-Public Use
  Company Number: US-ABBOTT-08P-163-0459723-00

PATIENT
  Sex: Female
  Weight: 83.99 kg

DRUGS (13)
  1. HUMIRA [Suspect]
     Indication: RHEUMATOID ARTHRITIS
     Route: 058
     Dates: start: 20080401, end: 20080401
  2. HUMIRA [Suspect]
     Indication: PSORIASIS
     Route: 058
     Dates: start: 20080401
  3. METHOTREXATE [Concomitant]
     Indication: RHEUMATOID ARTHRITIS
  4. CALCIUM-SANDOZ [Concomitant]
     Indication: OSTEOPOROSIS
  5. FOLIC ACID [Concomitant]
     Indication: VITAMIN SUPPLEMENTATION
  6. TRAZODONE [Concomitant]
     Indication: INSOMNIA
  7. ZOLPIDEM [Concomitant]
     Indication: INSOMNIA
  8. EXENATIDE [Concomitant]
     Indication: DIABETES MELLITUS
     Route: 058
  9. EZETIMIBE [Concomitant]
     Indication: BLOOD CHOLESTEROL INCREASED
  10. LOSARTAN POTASSIUM [Concomitant]
     Indication: HYPERTENSION
  11. MAGNESIUM HYDROXIDE TAB [Concomitant]
     Indication: MINERAL SUPPLEMENTATION
  12. ASPIRIN [Concomitant]
     Indication: CARDIOVASCULAR EVENT PROPHYLAXIS
  13. GENERIC ACID PILL [Concomitant]
     Indication: GASTROOESOPHAGEAL REFLUX DISEASE

REACTIONS (3)
  - INCORRECT DOSE ADMINISTERED [None]
  - INJECTION SITE EXTRAVASATION [None]
  - INJECTION SITE HAEMORRHAGE [None]
